FAERS Safety Report 15897842 (Version 1)
Quarter: 2019Q1

REPORT INFORMATION
  Report Type: Spontaneous
  Country: GB (occurrence: GB)
  Receive Date: 20190201
  Receipt Date: 20190201
  Transmission Date: 20190417
  Serious: Yes (Hospitalization, Other)
  Sender: FDA-Public Use
  Company Number: GB-BRISTOL-MYERS SQUIBB COMPANY-BMS-2019-006468

PATIENT
  Age: 56 Year
  Sex: Female

DRUGS (1)
  1. ORENCIA [Suspect]
     Active Substance: ABATACEPT
     Indication: RHEUMATOID ARTHRITIS
     Dosage: UNK
     Route: 065
     Dates: start: 2018

REACTIONS (6)
  - Sepsis [Unknown]
  - Product storage error [Unknown]
  - Rheumatoid arthritis [Unknown]
  - Pulmonary oedema [Unknown]
  - Pneumonia [Unknown]
  - Lower respiratory tract infection [Unknown]

NARRATIVE: CASE EVENT DATE: 20190102
